FAERS Safety Report 8465456-6 (Version None)
Quarter: 2012Q2

REPORT INFORMATION
  Report Type: 
  Country: None (occurrence: None)
  Receive Date: 20120626
  Receipt Date: 20120621
  Transmission Date: 20120825
  Serious: Yes (Disabling, Other)
  Sender: FDA-Public Use
  Company Number: PHHY2012FR016403

PATIENT
  Sex: Female
  Weight: 65 kg

DRUGS (7)
  1. ZOLEDRONOC ACID [Suspect]
     Indication: OSTEOPOROSIS
     Dosage: 5 MG, UNK
     Route: 042
     Dates: start: 20120110
  2. IRBESARTAN AND HYDROCHLOROTHIAZIDE [Concomitant]
     Indication: HYPERTENSION
     Dosage: 300/25 MG QD
  3. SPASFON [Concomitant]
  4. POLYETHYLENE GLYCOL [Concomitant]
  5. SIMVASTATIN [Concomitant]
     Indication: HYPERCHOLESTEROLAEMIA
     Dosage: 20 MG, QD
  6. COLPOTROPHINE [Concomitant]
  7. OXAZEPAM [Concomitant]
     Indication: ANXIETY
     Dosage: 50 MG, QD

REACTIONS (18)
  - PAIN IN EXTREMITY [None]
  - LOCAL SWELLING [None]
  - OEDEMA PERIPHERAL [None]
  - ABDOMINAL PAIN UPPER [None]
  - ABDOMINAL PAIN [None]
  - DIZZINESS [None]
  - ARTHRALGIA [None]
  - ASTHENIA [None]
  - MUSCULOSKELETAL STIFFNESS [None]
  - WEIGHT DECREASED [None]
  - AURICULAR SWELLING [None]
  - GINGIVAL PAIN [None]
  - PYREXIA [None]
  - MUSCULOSKELETAL PAIN [None]
  - SWELLING FACE [None]
  - DECREASED APPETITE [None]
  - BLOOD CALCIUM DECREASED [None]
  - VOMITING [None]
